FAERS Safety Report 6210885-4 (Version None)
Quarter: 2009Q2

REPORT INFORMATION
  Report Type: 
  Country: None (occurrence: None)
  Receive Date: 20090527
  Receipt Date: 20090518
  Transmission Date: 20091009
  Serious: Yes (Death, Hospitalization, Other)
  Sender: FDA-Public Use
  Company Number: 2009US001855

PATIENT
  Age: 73 Year
  Sex: Male

DRUGS (3)
  1. PROGRAF [Suspect]
     Indication: HEART TRANSPLANT
     Dates: start: 20060101
  2. MYCOPHENOLATE MOFETIL [Suspect]
     Indication: HEART TRANSPLANT
     Dates: start: 20060101
  3. PREDNISONE TAB [Suspect]
     Indication: HEART TRANSPLANT
     Dates: start: 20060101

REACTIONS (5)
  - AMERICAN TRYPANOSOMIASIS [None]
  - CARDIAC FAILURE [None]
  - CARDIAC FAILURE CONGESTIVE [None]
  - CYTOMEGALOVIRUS INFECTION [None]
  - PNEUMONIA ASPIRATION [None]
